FAERS Safety Report 20278941 (Version 2)
Quarter: 2022Q1

REPORT INFORMATION
  Report Type: Report from Study
  Country: CN (occurrence: CN)
  Receive Date: 20220103
  Receipt Date: 20220214
  Transmission Date: 20220423
  Serious: Yes (Hospitalization)
  Sender: FDA-Public Use
  Company Number: CN-NOVARTISPH-NVSC2021CN110467

PATIENT
  Age: 64 Year
  Sex: Female

DRUGS (28)
  1. ZYKADIA [Suspect]
     Active Substance: CERITINIB
     Indication: Non-small cell lung cancer
     Dosage: 3 DOSAGE FORM, (3 CAPSULES 450 MG),QD
     Route: 048
     Dates: start: 20200415
  2. DIISOPROPYLAMINE DICHLOROACETATE [Concomitant]
     Indication: Liver disorder
     Dosage: 80 MG
     Route: 042
     Dates: start: 20200415, end: 20200415
  3. DIISOPROPYLAMINE DICHLOROACETATE [Concomitant]
     Dosage: 80 MG
     Route: 042
     Dates: start: 20201020, end: 20201022
  4. DIISOPROPYLAMINE DICHLOROACETATE [Concomitant]
     Dosage: 80 MG
     Route: 042
     Dates: start: 20201228, end: 20201230
  5. MANNATIDE [Concomitant]
     Indication: Immune enhancement therapy
     Dosage: 10 MG
     Route: 042
     Dates: start: 20200415, end: 20200415
  6. MANNATIDE [Concomitant]
     Dosage: 20 MG
     Route: 042
     Dates: start: 20201020, end: 20201022
  7. MANNATIDE [Concomitant]
     Dosage: 20 MG
     Route: 042
     Dates: start: 20201228, end: 20201230
  8. DEXAMETHASONE SODIUM PHOSPHATE [Concomitant]
     Active Substance: DEXAMETHASONE SODIUM PHOSPHATE
     Indication: Anaphylaxis treatment
     Dosage: 5 MG
     Route: 042
     Dates: start: 20200415, end: 20200415
  9. DEXAMETHASONE SODIUM PHOSPHATE [Concomitant]
     Active Substance: DEXAMETHASONE SODIUM PHOSPHATE
     Indication: Immune tolerance induction
     Dosage: 5 MG
     Route: 042
     Dates: start: 20201020, end: 20201021
  10. DEXAMETHASONE SODIUM PHOSPHATE [Concomitant]
     Active Substance: DEXAMETHASONE SODIUM PHOSPHATE
     Dosage: 5 MG
     Route: 042
     Dates: start: 20201228, end: 20201228
  11. BICYCLOL [Concomitant]
     Active Substance: BICYCLOL
     Indication: Product used for unknown indication
     Dosage: 25 MG
     Route: 048
     Dates: start: 20200415, end: 20200416
  12. BICYCLOL [Concomitant]
     Active Substance: BICYCLOL
     Dosage: 25 MG
     Route: 048
     Dates: start: 20201021, end: 20201023
  13. BICYCLOL [Concomitant]
     Active Substance: BICYCLOL
     Dosage: 25 MG
     Route: 048
     Dates: start: 20201229, end: 20201231
  14. VITAMIN B12 [Concomitant]
     Active Substance: CYANOCOBALAMIN
     Indication: Anaemia
     Dosage: 1 ML
     Route: 030
     Dates: start: 20201020, end: 20201020
  15. DISODIUM CANTHARIDINATE [Concomitant]
     Indication: Neoplasm malignant
     Dosage: 30 ML
     Route: 042
     Dates: start: 20200415, end: 20200415
  16. DISODIUM CANTHARIDINATE [Concomitant]
     Dosage: 30 ML
     Route: 042
     Dates: start: 20201020, end: 20201022
  17. DISODIUM CANTHARIDINATE [Concomitant]
     Dosage: 30 ML
     Route: 042
     Dates: start: 20201228, end: 20201230
  18. DOLASETRON MESYLATE [Concomitant]
     Active Substance: DOLASETRON MESYLATE
     Indication: Vomiting
     Dosage: 8 ML
     Route: 042
     Dates: start: 20201021, end: 20201021
  19. DOLASETRON MESYLATE [Concomitant]
     Active Substance: DOLASETRON MESYLATE
     Dosage: 8 ML
     Route: 042
     Dates: start: 20201229, end: 20201229
  20. CARBOPLATIN [Concomitant]
     Active Substance: CARBOPLATIN
     Indication: Neoplasm malignant
     Dosage: 500 MG
     Route: 042
     Dates: start: 20201021, end: 20201021
  21. CARBOPLATIN [Concomitant]
     Active Substance: CARBOPLATIN
     Dosage: 500 MG
     Route: 042
     Dates: start: 20201229, end: 20201229
  22. PEMETREXED DISODIUM [Concomitant]
     Active Substance: PEMETREXED DISODIUM
     Indication: Neoplasm malignant
     Dosage: 800 MG
     Route: 042
     Dates: start: 20211021, end: 20211021
  23. RABEPRAZOLE SODIUM [Concomitant]
     Active Substance: RABEPRAZOLE SODIUM
     Indication: Gastrooesophageal reflux disease
     Dosage: 20 NG
     Route: 042
     Dates: start: 20201021, end: 20201022
  24. RABEPRAZOLE SODIUM [Concomitant]
     Active Substance: RABEPRAZOLE SODIUM
     Dosage: 20 MG
     Route: 042
     Dates: start: 20201229, end: 20201230
  25. MINERALS\VITAMINS [Concomitant]
     Active Substance: MINERALS\VITAMINS
     Indication: Anaemia
     Dosage: 1 DOSAGE FORM
     Route: 048
     Dates: start: 20201021, end: 20201023
  26. CODEINE PHOSPHATE [Concomitant]
     Active Substance: CODEINE PHOSPHATE
     Indication: Cough
     Dosage: 24 MG
     Route: 048
     Dates: start: 20201021, end: 20201023
  27. PACLITAXEL [Concomitant]
     Active Substance: PACLITAXEL
     Indication: Neoplasm
     Dosage: 400 MG
     Route: 042
     Dates: start: 20201229, end: 20201229
  28. RECOMBINANT HUMAN GRANULOCYTE COLONY STIMULAT [Concomitant]
     Indication: Product used for unknown indication
     Dosage: 100 UG
     Route: 023
     Dates: start: 20201230, end: 20201230

REACTIONS (2)
  - Neoplasm progression [Not Recovered/Not Resolved]
  - Blood creatinine increased [Not Recovered/Not Resolved]

NARRATIVE: CASE EVENT DATE: 20200619
